FAERS Safety Report 5683533-X (Version None)
Quarter: 2008Q1

REPORT INFORMATION
  Report Type: 
  Country: None (occurrence: None)
  Receive Date: 20080326
  Receipt Date: 20080310
  Transmission Date: 20080703
  Serious: Yes (Death)
  Sender: FDA-Public Use
  Company Number: 2008JP000738

PATIENT
  Age: 25 Year
  Sex: Male

DRUGS (3)
  1. PROGRAF [Suspect]
     Indication: RENAL TRANSPLANT
     Dosage: 5 MG, ORAL
     Route: 048
     Dates: start: 20001214
  2. PREDNISOLONE [Concomitant]
  3. CELLCEPT [Concomitant]

REACTIONS (9)
  - ALTERED STATE OF CONSCIOUSNESS [None]
  - ANAEMIA [None]
  - ANOREXIA [None]
  - BLOOD CREATININE INCREASED [None]
  - CONVULSION [None]
  - ENCEPHALITIS VIRAL [None]
  - HERPES ZOSTER [None]
  - MELAENA [None]
  - VOMITING [None]
